FAERS Safety Report 4432142-9 (Version None)
Quarter: 2004Q3

REPORT INFORMATION
  Report Type: 
  Country: None (occurrence: None)
  Receive Date: 20040818
  Receipt Date: 20040805
  Transmission Date: 20050211
  Serious: Yes (Other)
  Sender: FDA-Public Use
  Company Number: 2004053466

PATIENT
  Age: 64 Year
  Sex: Female

DRUGS (3)
  1. ZYRTEC [Suspect]
     Indication: INFLAMMATION
     Dosage: 10 MG (10 MG, 1 IN 1 D)
     Dates: start: 20040713, end: 20040714
  2. ZYRTEC [Suspect]
     Indication: PRURITUS
     Dosage: 10 MG (10 MG, 1 IN 1 D)
     Dates: start: 20040713, end: 20040714
  3. AMOXI-CLAVULANICO (AMOXICILLIN, CLAVULANIC ACID) [Suspect]
     Indication: ILL-DEFINED DISORDER
     Dates: start: 20040713

REACTIONS (1)
  - LOSS OF CONSCIOUSNESS [None]
